FAERS Safety Report 7396123-8 (Version None)
Quarter: 2011Q2

REPORT INFORMATION
  Report Type: 
  Country: None (occurrence: None)
  Receive Date: 20110406
  Receipt Date: 20110325
  Transmission Date: 20111010
  Serious: Yes (Hospitalization)
  Sender: FDA-Public Use
  Company Number: DE-ELI_LILLY_AND_COMPANY-DE201103006887

PATIENT
  Sex: Female

DRUGS (5)
  1. CALCIMAGON [Concomitant]
     Dosage: UNK, UNKNOWN
     Route: 065
  2. FORTEO [Suspect]
     Indication: OSTEOPOROSIS
     Dosage: UNK, QD
     Route: 058
     Dates: start: 20101004
  3. PANTOPRAZOLE SODIUM [Concomitant]
     Dosage: UNK, UNKNOWN
     Route: 065
  4. TILIDIN [Concomitant]
     Dosage: 150 UNK, UNKNOWN
     Route: 065
  5. LEVOTHYROXINE SODIUM [Concomitant]
     Dosage: 75 UNK, UNKNOWN
     Route: 065

REACTIONS (3)
  - BENIGN BONE NEOPLASM [None]
  - BURSITIS [None]
  - HIP ARTHROPLASTY [None]
